FAERS Safety Report 8535292-0 (Version None)
Quarter: 2012Q3

REPORT INFORMATION
  Report Type: 
  Country: None (occurrence: None)
  Receive Date: 20120725
  Receipt Date: 20120717
  Transmission Date: 20120928
  Serious: Yes (Hospitalization, Other)
  Sender: FDA-Public Use
  Company Number: US-009507513-2012SP016676

PATIENT

DRUGS (9)
  1. GEODON [Concomitant]
     Indication: PRODUCT USED FOR UNKNOWN INDICATION
     Dosage: UPDATE (23-APR-2012)
     Route: 065
  2. RIBAVIRIN [Suspect]
     Indication: HEPATITIS C
     Dosage: 600 MG, UNKNOWN
     Route: 065
     Dates: start: 20120207
  3. PROMETHAZINE [Concomitant]
     Indication: PRODUCT USED FOR UNKNOWN INDICATION
     Dosage: UPDATE (23-APR-2012) : TID/PRN
     Route: 065
     Dates: start: 20120328
  4. PRILOSEC [Concomitant]
     Indication: PRODUCT USED FOR UNKNOWN INDICATION
     Dosage: UPDATE (23-APR-2012)
     Route: 065
  5. AMBIEN [Concomitant]
     Indication: SLEEP DISORDER
     Dosage: UNK UNK, HS
     Route: 065
  6. PEG-INTRON [Suspect]
     Indication: HEPATITIS C
     Dosage: 150 ?G, UNKNOWN
     Route: 065
     Dates: start: 20120207
  7. VICTRELIS [Suspect]
     Indication: HEPATITIS C
     Dosage: 2400 MG, UNKNOWN
     Route: 065
     Dates: start: 20120306
  8. FERROUS SULFATE TAB [Concomitant]
     Indication: ANAEMIA
     Dosage: UNK UNK, UNKNOWN
     Route: 065
  9. PROZAC [Concomitant]
     Indication: PRODUCT USED FOR UNKNOWN INDICATION
     Dosage: UPDATE (23-APR-2012)
     Route: 065

REACTIONS (6)
  - DYSGEUSIA [None]
  - NAUSEA [None]
  - INFLUENZA LIKE ILLNESS [None]
  - PAIN IN EXTREMITY [None]
  - HAEMOGLOBIN DECREASED [None]
  - FATIGUE [None]
